FAERS Safety Report 4843469-0 (Version None)
Quarter: 2005Q4

REPORT INFORMATION
  Report Type: 
  Country: None (occurrence: None)
  Receive Date: 20051027
  Receipt Date: 20050810
  Transmission Date: 20060501
  Serious: No
  Sender: FDA-Public Use
  Company Number: ZICO001269

PATIENT
  Age: 51 Year
  Sex: Female

DRUGS (2)
  1. PRIALT [Suspect]
     Indication: DRUG USE FOR UNKNOWN INDICATION
     Dosage: 0.025 MCG/HR INTRATHECAL
     Route: 037
     Dates: start: 20050101, end: 20050706
  2. FENTANYL [Concomitant]

REACTIONS (5)
  - DERMATITIS EXFOLIATIVE [None]
  - DYSGEUSIA [None]
  - NAUSEA [None]
  - VOMITING [None]
  - WEIGHT DECREASED [None]
